FAERS Safety Report 11735866 (Version 2)
Quarter: 2015Q4

REPORT INFORMATION
  Report Type: Spontaneous
  Country: US (occurrence: US)
  Receive Date: 20151113
  Receipt Date: 20151210
  Transmission Date: 20160304
  Serious: No
  Sender: FDA-Public Use
  Company Number: US-JNJFOC-20150916907

PATIENT
  Age: 20 Year
  Sex: Male
  Weight: 34.02 kg

DRUGS (8)
  1. TRAZODONE [Concomitant]
     Active Substance: TRAZODONE HYDROCHLORIDE
     Indication: SLEEP DISORDER
     Route: 065
     Dates: start: 20150915, end: 20150921
  2. RISPERIDONE. [Concomitant]
     Active Substance: RISPERIDONE
     Indication: BIPOLAR DISORDER
     Dosage: 1 MG/ 1.5 MG
     Route: 065
     Dates: start: 20150918, end: 20150921
  3. BENZTROPINE [Concomitant]
     Active Substance: BENZTROPINE
     Route: 065
     Dates: start: 20150917, end: 20150921
  4. ZYPREXA ZYDIS [Concomitant]
     Active Substance: OLANZAPINE
     Indication: DEPRESSION
     Dosage: 15MG/10MG;
     Route: 065
     Dates: start: 20150915, end: 20150921
  5. ZYPREXA ZYDIS [Concomitant]
     Active Substance: OLANZAPINE
     Indication: SCHIZOPHRENIA
     Dosage: 15MG/10MG;
     Route: 065
     Dates: start: 20150915, end: 20150921
  6. HYDROXYZINE [Concomitant]
     Active Substance: HYDROXYZINE\HYDROXYZINE HYDROCHLORIDE
     Indication: PRURITUS
     Route: 065
     Dates: start: 20150915, end: 20150921
  7. RISPERIDONE. [Concomitant]
     Active Substance: RISPERIDONE
     Indication: SCHIZOPHRENIA
     Dosage: 1 MG/ 1.5 MG
     Route: 065
     Dates: start: 20150918, end: 20150921
  8. RISPERDAL CONSTA [Suspect]
     Active Substance: RISPERIDONE
     Indication: PRODUCT USED FOR UNKNOWN INDICATION
     Route: 030
     Dates: start: 20150918

REACTIONS (2)
  - Product quality issue [Unknown]
  - Drug dose omission [Not Recovered/Not Resolved]

NARRATIVE: CASE EVENT DATE: 20150918
